FAERS Safety Report 13828625 (Version 1)
Quarter: 2017Q3

REPORT INFORMATION
  Report Type: Spontaneous
  Country: IL (occurrence: IL)
  Receive Date: 20170803
  Receipt Date: 20170803
  Transmission Date: 20171127
  Serious: Yes (Other)
  Sender: FDA-Public Use
  Company Number: IL-BAUSCH-BL-2017-022378

PATIENT
  Age: 21 Year
  Sex: Female

DRUGS (2)
  1. MINOCYCLINE [Suspect]
     Active Substance: MINOCYCLINE\MINOCYCLINE HYDROCHLORIDE
     Indication: ACNE
     Dosage: 50 TO 100 MG
     Route: 065
  2. MINOCYCLINE [Suspect]
     Active Substance: MINOCYCLINE\MINOCYCLINE HYDROCHLORIDE
     Dosage: RECHALLENGE WITH A SINGLE DOSE OF 50 TO 100 MG MINOCYCLINE
     Route: 065

REACTIONS (3)
  - Autoimmune disorder [Recovered/Resolved]
  - Polyarthritis [Recovered/Resolved]
  - Arthralgia [Recovered/Resolved]
